FAERS Safety Report 6675187-0 (Version None)
Quarter: 2010Q2

REPORT INFORMATION
  Report Type: 
  Country: None (occurrence: None)
  Receive Date: 20100409
  Receipt Date: 20100330
  Transmission Date: 20101027
  Serious: Yes (Other)
  Sender: FDA-Public Use
  Company Number: CA-JNJCH-2010003184

PATIENT
  Sex: Female

DRUGS (1)
  1. LISTERINE COOL CITRUS [Suspect]
     Indication: DENTAL DISORDER PROPHYLAXIS
     Dosage: TEXT:^SMALL CAPFUL^ ONCE
     Route: 048
     Dates: start: 20100124, end: 20100124

REACTIONS (19)
  - ANXIETY [None]
  - APPLICATION SITE BURN [None]
  - APPLICATION SITE DISCOLOURATION [None]
  - APPLICATION SITE PAIN [None]
  - APPLICATION SITE ULCER [None]
  - APPLICATION SITE VESICLES [None]
  - CRYING [None]
  - DEPRESSED MOOD [None]
  - DISCOMFORT [None]
  - DYSPHAGIA [None]
  - EATING DISORDER [None]
  - FEAR [None]
  - GINGIVAL RECESSION [None]
  - ORAL DISORDER [None]
  - SCAR [None]
  - SWELLING [None]
  - TOOTH DISORDER [None]
  - WEIGHT DECREASED [None]
  - WRONG TECHNIQUE IN DRUG USAGE PROCESS [None]
